FAERS Safety Report 11723488 (Version 1)
Quarter: 2015Q4

REPORT INFORMATION
  Report Type: Spontaneous
  Country: US (occurrence: US)
  Receive Date: 20151111
  Receipt Date: 20151111
  Transmission Date: 20160304
  Serious: Yes (Other)
  Sender: FDA-Public Use
  Company Number: US-BAUSCH-BL-2015-026254

PATIENT
  Sex: Female

DRUGS (3)
  1. HCTZ [Concomitant]
     Active Substance: HYDROCHLOROTHIAZIDE
     Indication: HYPERTENSION
  2. VASOTEC [Suspect]
     Active Substance: ENALAPRIL MALEATE
     Indication: HYPERTENSION
     Route: 065
     Dates: start: 2011
  3. VASOTEC [Suspect]
     Active Substance: ENALAPRIL MALEATE
     Route: 065
     Dates: end: 20140429

REACTIONS (15)
  - Anxiety [Unknown]
  - Depression [Unknown]
  - Irritability [Unknown]
  - Insomnia [Unknown]
  - Exposure during pregnancy [Unknown]
  - Nightmare [Unknown]
  - Aggression [Unknown]
  - Mood altered [Unknown]
  - Libido decreased [Unknown]
  - Increased appetite [Unknown]
  - Tearfulness [Unknown]
  - Activities of daily living impaired [Unknown]
  - Anger [Unknown]
  - Social avoidant behaviour [Unknown]
  - Crying [Unknown]
